FAERS Safety Report 13192103 (Version 1)
Quarter: 2017Q1

REPORT INFORMATION
  Report Type: Spontaneous
  Country: US (occurrence: US)
  Receive Date: 20170206
  Receipt Date: 20170206
  Transmission Date: 20170428
  Serious: No
  Sender: FDA-Public Use
  Company Number: None

PATIENT
  Age: 76 Year
  Sex: Male
  Weight: 70.31 kg

DRUGS (9)
  1. PRESERVISION EYE VITAMIN [Concomitant]
  2. CLOBETASOL PROPIONATE. [Concomitant]
     Active Substance: CLOBETASOL PROPIONATE
  3. MENS ONE A DAY [Concomitant]
  4. GLUCOSAMINE CHONDROITIN [Concomitant]
     Active Substance: CHONDROITIN SULFATE (BOVINE)\GLUCOSAMINE HYDROCHLORIDE
  5. FLUOCINONIDE. [Concomitant]
     Active Substance: FLUOCINONIDE
  6. GRISEOFULVIN MICRO 500MG TAB [Suspect]
     Active Substance: GRISEOFULVIN, MICROSIZE
     Indication: FUNGAL INFECTION
     Dosage: 1 PILL PER DAY MOUTH
     Route: 048
     Dates: start: 20161125, end: 20161213
  7. VITAMIN B12 [Concomitant]
     Active Substance: CYANOCOBALAMIN
  8. VITAMIN D3 [Concomitant]
     Active Substance: CHOLECALCIFEROL
  9. MELATONIN [Concomitant]
     Active Substance: MELATONIN

REACTIONS (5)
  - Therapy cessation [None]
  - Rash [None]
  - Disturbance in attention [None]
  - Headache [None]
  - Dizziness [None]

NARRATIVE: CASE EVENT DATE: 20161126
